FAERS Safety Report 8966763 (Version 4)
Quarter: 2013Q1

REPORT INFORMATION
  Report Type: Spontaneous
  Country: JP (occurrence: JP)
  Receive Date: 20121217
  Receipt Date: 20130201
  Transmission Date: 20140127
  Serious: Yes (Hospitalization, Other)
  Sender: FDA-Public Use
  Company Number: JP-PFIZER INC-2012318648

PATIENT
  Age: 58 Year
  Sex: Male
  Weight: 55 kg

DRUGS (13)
  1. LYRICA [Suspect]
     Dosage: 150 MG, DAILY
     Route: 048
     Dates: start: 20121128, end: 20121213
  2. COBAMAMIDE [Concomitant]
     Dosage: 1500 UG/DAY
     Route: 048
     Dates: start: 20121121
  3. BERAPROST SODIUM [Concomitant]
     Dosage: 120 UG/DAY
     Route: 048
     Dates: start: 20121121
  4. VITAMIN E [Concomitant]
     Dosage: 50 MG, 3X/DAY
     Route: 048
  5. MEXILETINE HYDROCHLORIDE [Concomitant]
     Dosage: 100 MG, 3X/DAY
     Route: 048
  6. METLIGINE [Concomitant]
     Dosage: 2 MG, 3X/DAY
     Route: 048
  7. DROXIDOPA [Concomitant]
     Dosage: 100 MG, 3X/DAY
     Route: 048
  8. MAGMITT [Concomitant]
     Dosage: 330 MG, 2X/DAY
     Route: 048
  9. FOLIAMIN [Concomitant]
     Dosage: 5 MG, 1X/DAY
     Route: 048
  10. SLOW-K [Concomitant]
     Dosage: 600 MG, 1X/DAY
     Route: 048
  11. ETIZOLAM [Concomitant]
     Dosage: 2 MG, 1X/DAY
     Route: 048
  12. SENNOSIDE A [Concomitant]
     Dosage: 24 MG, 1X/DAY
     Route: 048
  13. TIZANIDINE HYDROCHLORIDE [Concomitant]
     Dosage: 2 MG, 3X/DAY
     Route: 048

REACTIONS (3)
  - Rhabdomyolysis [Recovered/Resolved]
  - Hypoglycaemia [Unknown]
  - Urticaria [Unknown]
